FAERS Safety Report 13044460 (Version 1)
Quarter: 2016Q4

REPORT INFORMATION
  Report Type: Spontaneous
  Country: US (occurrence: US)
  Receive Date: 20161220
  Receipt Date: 20161220
  Transmission Date: 20170207
  Serious: Yes (Other)
  Sender: FDA-Public Use
  Company Number: US-ROCHE-1046617

PATIENT
  Age: 78 Year
  Sex: Male
  Weight: 81.72 kg

DRUGS (1)
  1. ZELBORAF [Suspect]
     Active Substance: VEMURAFENIB
     Indication: COLON CANCER
     Route: 065
     Dates: start: 20120212

REACTIONS (8)
  - Decreased appetite [Unknown]
  - Diarrhoea [Unknown]
  - Breast pain [Unknown]
  - Fatigue [Recovered/Resolved]
  - Squamous cell carcinoma [Unknown]
  - Nausea [Unknown]
  - Sunburn [Unknown]
  - Nipple pain [Unknown]

NARRATIVE: CASE EVENT DATE: 20120229
